FAERS Safety Report 20932604 (Version 1)
Quarter: 2022Q2

REPORT INFORMATION
  Report Type: Spontaneous
  Country: US (occurrence: None)
  Receive Date: 20220607
  Receipt Date: 20220607
  Transmission Date: 20220721
  Serious: Yes (Death)
  Sender: FDA-Public Use
  Company Number: None

PATIENT
  Sex: Male

DRUGS (9)
  1. STELARA [Suspect]
     Active Substance: USTEKINUMAB
  2. ARIPIPRAZOLE SOL [Concomitant]
  3. ARIPIPRAZOLE TAB [Concomitant]
  4. BELSOMRA TAB [Concomitant]
  5. CLONAZEP ODT [Concomitant]
  6. CLONAZEPAM [Concomitant]
     Active Substance: CLONAZEPAM
  7. FLOVENT HFA AER [Concomitant]
  8. QUETIAPINE [Concomitant]
  9. VENTOLIN HFA [Concomitant]

REACTIONS (1)
  - Death [None]
